FAERS Safety Report 25235377 (Version 1)
Quarter: 2025Q2

REPORT INFORMATION
  Report Type: Spontaneous
  Country: FR (occurrence: FR)
  Receive Date: 20250424
  Receipt Date: 20250424
  Transmission Date: 20250717
  Serious: Yes (Other)
  Sender: GRIFOLS
  Company Number: None

PATIENT
  Age: 76 Year
  Sex: Female
  Weight: 81 kg

DRUGS (2)
  1. FLEBOGAMMA DIF [Suspect]
     Active Substance: HUMAN IMMUNOGLOBULIN G
     Indication: Polyneuropathy
     Route: 042
     Dates: start: 20250221, end: 20250221
  2. FLEBOGAMMA DIF [Suspect]
     Active Substance: HUMAN IMMUNOGLOBULIN G
     Route: 042
     Dates: start: 20250221, end: 20250221

REACTIONS (3)
  - Feeling cold [Recovered/Resolved]
  - Feeling abnormal [Recovered/Resolved]
  - Fear of death [Recovered/Resolved]

NARRATIVE: CASE EVENT DATE: 20250221
